FAERS Safety Report 4961245-5 (Version None)
Quarter: 2006Q1

REPORT INFORMATION
  Report Type: 
  Country: None (occurrence: None)
  Receive Date: 20060201
  Receipt Date: 20051026
  Transmission Date: 20060701
  Serious: No
  Sender: FDA-Public Use
  Company Number: 2005PV003717

PATIENT
  Age: 62 Year
  Sex: Female
  Weight: 117.9352 kg

DRUGS (4)
  1. BYETTA [Suspect]
     Indication: DIABETES MELLITUS NON-INSULIN-DEPENDENT
     Dosage: 5 MCG;BID;SC
     Route: 058
     Dates: start: 20051015
  2. AMARYL [Concomitant]
  3. ANTIBIOTIC [Concomitant]
  4. ENALAPRIL MALEATE [Concomitant]

REACTIONS (8)
  - BLOOD GLUCOSE INCREASED [None]
  - DIARRHOEA [None]
  - NAUSEA [None]
  - NERVOUSNESS [None]
  - ORAL CANDIDIASIS [None]
  - ORAL DISCOMFORT [None]
  - STRESS [None]
  - VOMITING [None]
